FAERS Safety Report 15395354 (Version 1)
Quarter: 2018Q3

REPORT INFORMATION
  Report Type: Spontaneous
  Country: US (occurrence: US)
  Receive Date: 20180911
  Receipt Date: 20180911
  Transmission Date: 20181010
  Serious: Yes (Hospitalization)
  Sender: FDA-Public Use
  Company Number: None

PATIENT

DRUGS (18)
  1. CLONIDINE. [Concomitant]
     Active Substance: CLONIDINE
  2. MUPIROCIN. [Concomitant]
     Active Substance: MUPIROCIN
  3. PENTOXIFYLLI [Concomitant]
  4. PRAVASTATIN. [Concomitant]
     Active Substance: PRAVASTATIN
  5. NYSTATIN. [Concomitant]
     Active Substance: NYSTATIN
  6. METHYLPRED [Concomitant]
     Active Substance: METHYLPREDNISOLONE
  7. SENSIPAR [Concomitant]
     Active Substance: CINACALCET HYDROCHLORIDE
  8. ASPIRIN. [Concomitant]
     Active Substance: ASPIRIN
  9. CARVEDILOL. [Concomitant]
     Active Substance: CARVEDILOL
  10. WARFARIN [Concomitant]
     Active Substance: WARFARIN
  11. DEXILANT [Concomitant]
     Active Substance: DEXLANSOPRAZOLE
  12. CALC ACETATE [Concomitant]
     Active Substance: CALCIUM ACETATE
  13. AMLODIPINE [Concomitant]
     Active Substance: AMLODIPINE BESYLATE
  14. TERAZOSIN [Concomitant]
     Active Substance: TERAZOSIN\TERAZOSIN HYDROCHLORIDE
  15. HYDROCO/APAP [Concomitant]
     Active Substance: ACETAMINOPHEN\HYDROCODONE
  16. ERIVEDGE [Suspect]
     Active Substance: VISMODEGIB
     Indication: PRODUCT USED FOR UNKNOWN INDICATION
     Route: 048
     Dates: start: 20180810
  17. HYDRALAZINE [Concomitant]
     Active Substance: HYDRALAZINE HYDROCHLORIDE
  18. PREDNISONE. [Concomitant]
     Active Substance: PREDNISONE

REACTIONS (1)
  - Drug dose omission [None]
